FAERS Safety Report 10144698 (Version 1)
Quarter: 2014Q2

REPORT INFORMATION
  Report Type: Spontaneous
  Country: US (occurrence: US)
  Receive Date: 20140430
  Receipt Date: 20140430
  Transmission Date: 20141212
  Serious: Yes (Other)
  Sender: FDA-Public Use
  Company Number: US-SANOFI-AVENTIS-2013SA063893

PATIENT
  Age: 59 Year
  Sex: Female
  Weight: 66.22 kg

DRUGS (5)
  1. ENOXAPARIN SODIUM - WINTHROP [Suspect]
     Indication: PROPHYLAXIS
     Route: 065
     Dates: start: 20130615, end: 20130619
  2. ENOXAPARIN SODIUM - WINTHROP [Suspect]
     Indication: HIP ARTHROPLASTY
     Route: 065
     Dates: start: 20130615, end: 20130619
  3. TYLENOL [Concomitant]
  4. ROBAXIN [Concomitant]
  5. CELEBREX [Concomitant]

REACTIONS (6)
  - Dyspnoea [Recovered/Resolved]
  - Urticaria [Recovered/Resolved]
  - Rash [Recovered/Resolved]
  - Pruritus [Recovered/Resolved]
  - Rash pustular [Not Recovered/Not Resolved]
  - Drug dose omission [Unknown]
